FAERS Safety Report 11126173 (Version 1)
Quarter: 2015Q2

REPORT INFORMATION
  Report Type: Spontaneous
  Country: BE (occurrence: BE)
  Receive Date: 20150520
  Receipt Date: 20150520
  Transmission Date: 20150821
  Serious: Yes (Other)
  Sender: FDA-Public Use
  Company Number: PHHY2013BE130489

PATIENT
  Sex: Male

DRUGS (2)
  1. DIGOXIN. [Suspect]
     Active Substance: DIGOXIN
     Indication: VENTRICULAR ARRHYTHMIA
     Route: 065
  2. BISOPROLOL [Suspect]
     Active Substance: BISOPROLOL
     Indication: VENTRICULAR ARRHYTHMIA
     Route: 065

REACTIONS (2)
  - Syncope [Unknown]
  - Drug intolerance [Unknown]
